FAERS Safety Report 14006360 (Version 3)
Quarter: 2017Q4

REPORT INFORMATION
  Report Type: Report from Study
  Country: None (occurrence: DE)
  Receive Date: 20170924
  Receipt Date: 20171110
  Transmission Date: 20180321
  Serious: Yes (Hospitalization, Other)
  Sender: FDA-Public Use
  Company Number: DE-ABBVIE-17K-062-2105003-00

PATIENT
  Sex: Female

DRUGS (7)
  1. HUMIRA [Suspect]
     Active Substance: ADALIMUMAB
     Indication: CROHN^S DISEASE
     Route: 058
     Dates: start: 2008, end: 2013
  2. BUPROPION. [Concomitant]
     Active Substance: BUPROPION
     Dates: start: 2017
  3. HUMIRA [Suspect]
     Active Substance: ADALIMUMAB
     Route: 058
     Dates: start: 20160215
  4. BUPROPION. [Concomitant]
     Active Substance: BUPROPION
     Indication: PRODUCT USED FOR UNKNOWN INDICATION
     Dates: start: 201707
  5. HUMIRA [Suspect]
     Active Substance: ADALIMUMAB
     Route: 058
     Dates: start: 2013, end: 2015
  6. HUMIRA [Suspect]
     Active Substance: ADALIMUMAB
     Route: 058
     Dates: start: 20171101
  7. HUMIRA [Suspect]
     Active Substance: ADALIMUMAB
     Indication: CROHN^S DISEASE
     Route: 058
     Dates: end: 201709

REACTIONS (12)
  - Ileus [Recovered/Resolved]
  - Haemorrhagic cyst [Unknown]
  - Exposure during pregnancy [Unknown]
  - Vertigo [Unknown]
  - Ovarian enlargement [Unknown]
  - Postoperative adhesion [Unknown]
  - Neoplasm [Recovered/Resolved]
  - Live birth [Unknown]
  - Depression [Unknown]
  - Uterine cyst [Unknown]
  - Hypotension [Recovering/Resolving]
  - Caesarean section [Unknown]

NARRATIVE: CASE EVENT DATE: 2013
